FAERS Safety Report 6071724-8 (Version None)
Quarter: 2009Q1

REPORT INFORMATION
  Report Type: 
  Country: None (occurrence: None)
  Receive Date: 20090205
  Receipt Date: 20090120
  Transmission Date: 20090719
  Serious: Yes (Other)
  Sender: FDA-Public Use
  Company Number: 2009S1001086

PATIENT
  Age: 13 Year
  Sex: Male

DRUGS (2)
  1. METHOTREXATE [Suspect]
     Indication: ACUTE LYMPHOCYTIC LEUKAEMIA
     Dosage: INTRATHECAL,INTRAVENOUS DRIP
     Route: 037
  2. CALCIUM FOLINATE [Concomitant]

REACTIONS (8)
  - DEMYELINATION [None]
  - INTENTION TREMOR [None]
  - MONOPARESIS [None]
  - NEUROTOXICITY [None]
  - PARESIS [None]
  - PERIPHERAL MOTOR NEUROPATHY [None]
  - REFLEXES ABNORMAL [None]
  - SPEECH DISORDER [None]
